FAERS Safety Report 8162514-0 (Version None)
Quarter: 2012Q1

REPORT INFORMATION
  Report Type: 
  Country: None (occurrence: None)
  Receive Date: 20120222
  Receipt Date: 20120214
  Transmission Date: 20120608
  Serious: Yes (Hospitalization)
  Sender: FDA-Public Use
  Company Number: DSA_48855_2012

PATIENT
  Sex: Female

DRUGS (1)
  1. XENAZINE [Suspect]
     Indication: HUNTINGTON'S DISEASE
     Dosage: (90 TABLETS IN THREE DAYS ORAL), (12.5 MG TID ORAL)
     Route: 048

REACTIONS (2)
  - DRUG ABUSE [None]
  - INCORRECT DOSE ADMINISTERED [None]
